FAERS Safety Report 17004346 (Version 1)
Quarter: 2019Q4

REPORT INFORMATION
  Report Type: Spontaneous
  Country: FR (occurrence: FR)
  Receive Date: 20191107
  Receipt Date: 20191107
  Transmission Date: 20200122
  Serious: Yes (Hospitalization)
  Sender: FDA-Public Use
  Company Number: FR-PFIZER INC-2019477120

PATIENT
  Age: 66 Year
  Sex: Female
  Weight: 62 kg

DRUGS (11)
  1. COUMADINE [Concomitant]
     Active Substance: WARFARIN SODIUM
     Dosage: UNK
  2. ALPRAZOLAM. [Concomitant]
     Active Substance: ALPRAZOLAM
     Dosage: UNK
  3. CRESTOR OD [Concomitant]
     Active Substance: ROSUVASTATIN CALCIUM
     Dosage: UNK
  4. DIFFU K [Concomitant]
     Active Substance: POTASSIUM CHLORIDE
     Dosage: UNK
  5. ZELITREX [Concomitant]
     Active Substance: VALACYCLOVIR HYDROCHLORIDE
     Dosage: UNK
  6. SPIRONOLACTONE. [Suspect]
     Active Substance: SPIRONOLACTONE
     Indication: HYPONATRAEMIA
     Dosage: 50 MG, 1X/DAY
     Route: 048
     Dates: end: 201810
  7. LASILIX SPECIAL [FUROSEMIDE] [Suspect]
     Active Substance: FUROSEMIDE
     Indication: HYPONATRAEMIA
     Dosage: 250 MG, 1X/DAY
     Route: 048
     Dates: end: 201810
  8. ASPIRINE PROTECT [Concomitant]
     Active Substance: ASPIRIN
     Dosage: UNK
  9. EZETROL [Concomitant]
     Active Substance: EZETIMIBE
     Dosage: UNK
  10. PANTOPRAZOLE [Concomitant]
     Active Substance: PANTOPRAZOLE
     Dosage: UNK
  11. DULOXETINE. [Concomitant]
     Active Substance: DULOXETINE
     Dosage: UNK

REACTIONS (4)
  - Orthostatic hypotension [Recovered/Resolved]
  - Off label use [Unknown]
  - Product use in unapproved indication [Unknown]
  - Malaise [Recovered/Resolved]

NARRATIVE: CASE EVENT DATE: 20181003
